FAERS Safety Report 8624991-8 (Version None)
Quarter: 2012Q3

REPORT INFORMATION
  Report Type: 
  Country: None (occurrence: None)
  Receive Date: 20120827
  Receipt Date: 20120820
  Transmission Date: 20120928
  Serious: Yes (Other)
  Sender: FDA-Public Use
  Company Number: PHHY2012JP073176

PATIENT
  Age: 20 Year
  Sex: Male

DRUGS (2)
  1. PREDNISOLONE [Suspect]
  2. CYCLOPHOSPHAMIDE [Concomitant]

REACTIONS (8)
  - OSTEOPOROSIS [None]
  - CATARACT [None]
  - GROWTH RETARDATION [None]
  - OEDEMA [None]
  - FOCAL SEGMENTAL GLOMERULOSCLEROSIS [None]
  - PROTEINURIA [None]
  - SKIN STRIAE [None]
  - NEPHROTIC SYNDROME [None]
